FAERS Safety Report 6693239-6 (Version None)
Quarter: 2010Q2

REPORT INFORMATION
  Report Type: 
  Country: None (occurrence: None)
  Receive Date: 20100421
  Receipt Date: 20100421
  Transmission Date: 20101027
  Serious: Yes (Other)
  Sender: FDA-Public Use
  Company Number: None

PATIENT
  Age: 7 Year
  Sex: Female
  Weight: 24.9478 kg

DRUGS (2)
  1. SULFAMETHOXAZOLE AND TRIMETHOPRIM [Suspect]
     Indication: KIDNEY INFECTION
     Dosage: 1 TABLET TWICE DAILY PO
     Route: 048
     Dates: start: 20100411, end: 20100416
  2. SULFAMETHOXAZOLE AND TRIMETHOPRIM [Suspect]
     Indication: URINARY TRACT INFECTION
     Dosage: 1 TABLET TWICE DAILY PO
     Route: 048
     Dates: start: 20100411, end: 20100416

REACTIONS (7)
  - AGITATION [None]
  - APATHY [None]
  - BELLIGERENCE [None]
  - DRUG INTERACTION [None]
  - HALLUCINATION [None]
  - PERSONALITY CHANGE [None]
  - PSYCHOTIC BEHAVIOUR [None]
